FAERS Safety Report 21663678 (Version 1)
Quarter: 2022Q4

REPORT INFORMATION
  Report Type: Spontaneous
  Country: US (occurrence: US)
  Receive Date: 20221130
  Receipt Date: 20221130
  Transmission Date: 20230113
  Serious: No
  Sender: FDA-Public Use
  Company Number: US-ELI_LILLY_AND_COMPANY-US202211006438

PATIENT

DRUGS (7)
  1. EVISTA [Suspect]
     Active Substance: RALOXIFENE HYDROCHLORIDE
     Indication: Product used for unknown indication
     Dosage: UNK, UNKNOWN
     Route: 065
  2. GLIPIZIDE [Suspect]
     Active Substance: GLIPIZIDE
     Indication: Product used for unknown indication
     Dosage: UNK, UNKNOWN
     Route: 065
  3. HYDROCHLOROTHIAZIDE [Suspect]
     Active Substance: HYDROCHLOROTHIAZIDE
     Indication: Product used for unknown indication
     Dosage: UNK, UNKNOWN
     Route: 065
  4. ZETIA [Suspect]
     Active Substance: EZETIMIBE
     Indication: Product used for unknown indication
  5. LIPITOR [Suspect]
     Active Substance: ATORVASTATIN CALCIUM
     Indication: Product used for unknown indication
     Dosage: UNK, UNKNOWN
     Route: 065
  6. HUMULIN N [Concomitant]
     Active Substance: INSULIN HUMAN
     Dosage: 25 INTERNATIONAL UNIT, EACH MORNING
     Route: 058
  7. HUMULIN N [Concomitant]
     Active Substance: INSULIN HUMAN
     Dosage: 30 INTERNATIONAL UNIT
     Route: 058

REACTIONS (1)
  - Drug hypersensitivity [Unknown]
